FAERS Safety Report 17367301 (Version 5)
Quarter: 2020Q4

REPORT INFORMATION
  Report Type: Spontaneous
  Country: US (occurrence: US)
  Receive Date: 20200204
  Receipt Date: 20201030
  Transmission Date: 20210113
  Serious: Yes (Hospitalization, Other)
  Sender: FDA-Public Use
  Company Number: US-PFIZER INC-2020043383

PATIENT
  Age: 42 Year
  Sex: Female

DRUGS (1)
  1. XELJANZ [Suspect]
     Active Substance: TOFACITINIB CITRATE
     Indication: COLITIS ULCERATIVE
     Dosage: 5 MG, 2X/DAY
     Route: 048
     Dates: start: 201908

REACTIONS (16)
  - Upper respiratory tract infection [Recovered/Resolved]
  - Gastroenteritis viral [Unknown]
  - Product dose omission issue [Unknown]
  - Constipation [Unknown]
  - Vomiting [Unknown]
  - Condition aggravated [Unknown]
  - Memory impairment [Unknown]
  - Decreased appetite [Unknown]
  - Pelvic neoplasm [Unknown]
  - Nausea [Unknown]
  - COVID-19 [Unknown]
  - Diarrhoea [Unknown]
  - Haematochezia [Unknown]
  - Ovarian neoplasm [Unknown]
  - Dyspepsia [Unknown]
  - Malaise [Unknown]

NARRATIVE: CASE EVENT DATE: 202009
